FAERS Safety Report 18865541 (Version 1)
Quarter: 2021Q1

REPORT INFORMATION
  Report Type: Spontaneous
  Country: JP (occurrence: JP)
  Receive Date: 20210208
  Receipt Date: 20210208
  Transmission Date: 20210420
  Serious: Yes (Other)
  Sender: FDA-Public Use
  Company Number: JP-ELI_LILLY_AND_COMPANY-JP202102001561

PATIENT
  Age: 77 Year
  Sex: Male

DRUGS (3)
  1. GEMCITABINE. [Concomitant]
     Active Substance: GEMCITABINE
  2. NECITUMUMAB [Suspect]
     Active Substance: NECITUMUMAB
     Indication: LUNG SQUAMOUS CELL CARCINOMA RECURRENT
     Dosage: 800 MG
     Route: 041
     Dates: start: 20210119, end: 20210119
  3. CISPLATIN. [Concomitant]
     Active Substance: CISPLATIN

REACTIONS (1)
  - Subdural haemorrhage [Not Recovered/Not Resolved]
